FAERS Safety Report 9655549 (Version 3)
Quarter: 2014Q1

REPORT INFORMATION
  Report Type: Report from Study
  Country: US (occurrence: US)
  Receive Date: 20131029
  Receipt Date: 20140114
  Transmission Date: 20141002
  Serious: Yes (Death)
  Sender: FDA-Public Use
  Company Number: US-ROCHE-1296764

PATIENT
  Age: 53 Year
  Sex: Female

DRUGS (1)
  1. XELODA [Suspect]
     Indication: BREAST CANCER METASTATIC
     Dosage: (4) TABS TWICE DAILY FOR 14 DAYS ON AND 14 OFF
     Route: 065

REACTIONS (3)
  - Breast cancer metastatic [Fatal]
  - Metastases to meninges [Fatal]
  - Disease progression [Fatal]
